FAERS Safety Report 8409145-2 (Version None)
Quarter: 2012Q2

REPORT INFORMATION
  Report Type: 
  Country: None (occurrence: None)
  Receive Date: 20120604
  Receipt Date: 20120530
  Transmission Date: 20120825
  Serious: Yes (Other)
  Sender: FDA-Public Use
  Company Number: PHHY2012CH046508

PATIENT
  Age: 40 Year
  Sex: Female

DRUGS (4)
  1. BILOL [Suspect]
     Indication: ESSENTIAL HYPERTENSION
     Dosage: 5 MG, DAILY
     Dates: start: 20090101
  2. AMLODIPINE BESYLATE [Suspect]
     Indication: ESSENTIAL HYPERTENSION
     Dosage: 5 MG, DAILY
     Dates: start: 20090101
  3. CALCIMAGON-D3 [Concomitant]
     Dates: start: 20090101
  4. DESOGESTREL AND ETHINYL ESTRADIOL [Suspect]
     Indication: CONTRACEPTION
     Dates: end: 20110624

REACTIONS (4)
  - OLIGOHYDRAMNIOS [None]
  - MATERNAL EXPOSURE DURING PREGNANCY [None]
  - UNINTENDED PREGNANCY [None]
  - NORMAL NEWBORN [None]
